FAERS Safety Report 16745615 (Version 1)
Quarter: 2019Q3

REPORT INFORMATION
  Report Type: Spontaneous
  Country: US (occurrence: US)
  Receive Date: 20190725
  Receipt Date: 20190725
  Transmission Date: 20191005
  Serious: Yes (Hospitalization)
  Sender: FDA-Public Use
  Company Number: None

PATIENT

DRUGS (1)
  1. FERRLECIT [Suspect]
     Active Substance: SODIUM FERRIC GLUCONATE COMPLEX
     Indication: BLOOD IRON DECREASED
     Dates: start: 201904, end: 201907

REACTIONS (4)
  - Chills [None]
  - Urticaria [None]
  - Dyspnoea [None]
  - Product quality issue [None]

NARRATIVE: CASE EVENT DATE: 20190701
